FAERS Safety Report 10284246 (Version 1)
Quarter: 2014Q3

REPORT INFORMATION
  Report Type: Spontaneous
  Country: US (occurrence: None)
  Receive Date: 20140703
  Receipt Date: 20140703
  Transmission Date: 20150326
  Serious: Yes (Disabling)
  Sender: FDA-Public Use
  Company Number: None

PATIENT
  Age: 52 Year
  Sex: Male
  Weight: 83.92 kg

DRUGS (1)
  1. TESTOPEL [Suspect]
     Active Substance: TESTOSTERONE
     Indication: BLOOD TESTOSTERONE DECREASED
     Dosage: 12 PELLETS EVERY 4 MONTHS GIVEN INTO/UNDER THE SKIN
     Route: 058

REACTIONS (2)
  - Hypertension [None]
  - Drug resistance [None]

NARRATIVE: CASE EVENT DATE: 20130709
